FAERS Safety Report 12448617 (Version 1)
Quarter: 2016Q2

REPORT INFORMATION
  Report Type: Spontaneous
  Country: CH (occurrence: CH)
  Receive Date: 20160608
  Receipt Date: 20160608
  Transmission Date: 20160815
  Serious: Yes (Hospitalization, Other)
  Sender: FDA-Public Use
  Company Number: CH-GILEAD-2016-0216570

PATIENT
  Sex: Male

DRUGS (1)
  1. GENVOYA [Suspect]
     Active Substance: COBICISTAT\ELVITEGRAVIR\EMTRICITABINE\TENOFOVIR ALAFENAMIDE FUMARATE
     Indication: HIV TEST POSITIVE
     Dosage: 1 DF, UNK
     Route: 065
     Dates: start: 2016

REACTIONS (6)
  - Neurosyphilis [Unknown]
  - Mental disorder [Unknown]
  - Abnormal behaviour [Unknown]
  - Nervous system disorder [Unknown]
  - Screaming [Unknown]
  - Confusional state [Unknown]
